FAERS Safety Report 14549333 (Version 1)
Quarter: 2018Q1

REPORT INFORMATION
  Report Type: Spontaneous
  Country: US (occurrence: US)
  Receive Date: 20180219
  Receipt Date: 20180219
  Transmission Date: 20180509
  Serious: Yes (Hospitalization)
  Sender: FDA-Public Use
  Company Number: US-ESPERO PHARMACEUTICALS-ESP201802-000006

PATIENT
  Age: 86 Year
  Sex: Female

DRUGS (2)
  1. NITROGLYCERIN. [Suspect]
     Active Substance: NITROGLYCERIN
     Route: 060
  2. REGADENOSON [Concomitant]
     Active Substance: REGADENOSON
     Route: 042

REACTIONS (6)
  - Ischaemia [Recovered/Resolved]
  - Medication error [Unknown]
  - Hypotension [Recovered/Resolved]
  - Lethargy [Recovered/Resolved]
  - Condition aggravated [Recovered/Resolved]
  - Mental status changes [Recovered/Resolved]
